FAERS Safety Report 6527680-9 (Version None)
Quarter: 2010Q1

REPORT INFORMATION
  Report Type: 
  Country: None (occurrence: None)
  Receive Date: 20100105
  Receipt Date: 20091225
  Transmission Date: 20100710
  Serious: Yes (Hospitalization)
  Sender: FDA-Public Use
  Company Number: JP-AMGEN-US366429

PATIENT
  Sex: Female
  Weight: 33 kg

DRUGS (5)
  1. ENBREL [Suspect]
     Indication: RHEUMATOID ARTHRITIS
     Route: 058
     Dates: start: 20080601, end: 20090501
  2. URSO 250 [Concomitant]
     Route: 048
  3. MUCODYNE [Concomitant]
     Route: 048
  4. MICARDIS [Concomitant]
     Route: 048
  5. THYRADIN [Concomitant]
     Route: 048

REACTIONS (2)
  - ATYPICAL MYCOBACTERIAL INFECTION [None]
  - HAEMOPTYSIS [None]
